FAERS Safety Report 10177172 (Version 1)
Quarter: 2014Q2

REPORT INFORMATION
  Report Type: Spontaneous
  Country: US (occurrence: US)
  Receive Date: 20140516
  Receipt Date: 20140516
  Transmission Date: 20141212
  Serious: Yes (Hospitalization)
  Sender: FDA-Public Use
  Company Number: US-MPIJNJ-2014MPI001381

PATIENT
  Sex: Female

DRUGS (4)
  1. VELCADE [Suspect]
     Indication: PLASMA CELL MYELOMA
     Dosage: 2.6 MG, 2/WEEK
     Route: 058
     Dates: start: 20131209
  2. VELCADE [Suspect]
     Dosage: 2.6 MG, 1/WEEK
     Route: 058
  3. REVLIMID [Suspect]
     Indication: PRODUCT USED FOR UNKNOWN INDICATION
     Dosage: UNK
  4. DEXAMETHASONE [Suspect]
     Dosage: UNK

REACTIONS (2)
  - Clostridium difficile colitis [Unknown]
  - Fatigue [Unknown]
